FAERS Safety Report 4398909-0 (Version None)
Quarter: 2004Q3

REPORT INFORMATION
  Report Type: 
  Country: None (occurrence: None)
  Receive Date: 20040712
  Receipt Date: 20040623
  Transmission Date: 20050211
  Serious: Yes (Hospitalization)
  Sender: FDA-Public Use
  Company Number: MEDI-0001453

PATIENT
  Age: 16 Month
  Sex: Female
  Weight: 8.72 kg

DRUGS (12)
  1. SYNAGIS [Suspect]
     Indication: ANTIVIRAL PROPHYLAXIS
     Dosage: 177 MG, 1 IN 30 D, INTRA-MUSCULAR : 120 MG, 1 IN 30 D, INTRA-MUSCULAR ; 120 MG, 1 IN 30 D, INTRA-MUS
     Route: 030
     Dates: start: 20031128, end: 20040126
  2. SYNAGIS [Suspect]
     Indication: ANTIVIRAL PROPHYLAXIS
     Dosage: 177 MG, 1 IN 30 D, INTRA-MUSCULAR : 120 MG, 1 IN 30 D, INTRA-MUSCULAR ; 120 MG, 1 IN 30 D, INTRA-MUS
     Route: 030
     Dates: start: 20031128
  3. SYNAGIS [Suspect]
     Indication: ANTIVIRAL PROPHYLAXIS
     Dosage: 177 MG, 1 IN 30 D, INTRA-MUSCULAR : 120 MG, 1 IN 30 D, INTRA-MUSCULAR ; 120 MG, 1 IN 30 D, INTRA-MUS
     Route: 030
     Dates: start: 20031225
  4. WARFARIN POTASSIUM [Concomitant]
  5. AMOXICILLIN [Concomitant]
  6. MUCODYNE (CARBOCISTEINE) [Concomitant]
  7. ASVERIN(TIPEPIDINE HIBENZATE) [Concomitant]
  8. PERIACTIN [Concomitant]
  9. LASIX [Concomitant]
  10. ASPIRIN (1-CHLORO-2,4-DINITROBENZENE) [Concomitant]
  11. NOVAROK(IMIDAPRIL HYDROCHLORIDE) [Concomitant]
  12. ALDACTONE [Concomitant]

REACTIONS (5)
  - CARDIAC FAILURE [None]
  - CONDITION AGGRAVATED [None]
  - FACE OEDEMA [None]
  - URINE OUTPUT DECREASED [None]
  - WEIGHT INCREASED [None]
